FAERS Safety Report 14585974 (Version 1)
Quarter: 2018Q1

REPORT INFORMATION
  Report Type: Spontaneous
  Country: US (occurrence: US)
  Receive Date: 20180301
  Receipt Date: 20180301
  Transmission Date: 20180509
  Serious: Yes (Other)
  Sender: FDA-Public Use
  Company Number: US-BAYER-2018-037654

PATIENT
  Age: 9 Year
  Sex: Male

DRUGS (2)
  1. DASATINIB. [Suspect]
     Active Substance: DASATINIB
     Dosage: UNK UNK, QD (60/M2)
  2. ACETYLSALICYLIC ACID({=100 MG) [Suspect]
     Active Substance: ASPIRIN
     Indication: THROMBOCYTOSIS
     Dosage: 81 MG, QD

REACTIONS (4)
  - Abdominal pain [None]
  - Product use issue [None]
  - Neutropenia [None]
  - Off label use [None]
